FAERS Safety Report 8801034 (Version 3)
Quarter: 2014Q3

REPORT INFORMATION
  Report Type: Report from Study
  Country: US (occurrence: US)
  Receive Date: 20120920
  Receipt Date: 20140815
  Transmission Date: 20150326
  Serious: Yes (Life-Threatening, Other)
  Sender: FDA-Public Use
  Company Number: US-ROCHE-1127598

PATIENT
  Sex: Female
  Weight: 73 kg

DRUGS (3)
  1. TAXOL [Concomitant]
     Active Substance: PACLITAXEL
     Route: 065
  2. AVASTIN [Suspect]
     Active Substance: BEVACIZUMAB
     Indication: BREAST CANCER FEMALE
     Route: 042
     Dates: start: 20061018, end: 20071127
  3. GEMZAR [Concomitant]
     Active Substance: GEMCITABINE HYDROCHLORIDE
     Route: 065

REACTIONS (4)
  - Impaired healing [Unknown]
  - Metastases to soft tissue [Unknown]
  - Infection [Unknown]
  - Drug ineffective [Unknown]
